FAERS Safety Report 5931630-3 (Version None)
Quarter: 2008Q4

REPORT INFORMATION
  Report Type: 
  Country: None (occurrence: None)
  Receive Date: 20081027
  Receipt Date: 20081022
  Transmission Date: 20090506
  Serious: Yes (Other)
  Sender: FDA-Public Use
  Company Number: BR-ASTRAZENECA-2008UW23657

PATIENT
  Age: 89 Year
  Sex: Female
  Weight: 70 kg

DRUGS (6)
  1. SEROQUEL [Suspect]
     Indication: BIPOLAR DISORDER
     Route: 048
     Dates: start: 20080701
  2. SEROQUEL [Suspect]
     Route: 048
  3. SEROQUEL [Suspect]
     Route: 048
  4. SEROQUEL [Suspect]
     Dosage: HALF A TABLET
     Route: 048
     Dates: start: 20081001
  5. ERANZ [Concomitant]
     Indication: DEMENTIA ALZHEIMER'S TYPE
     Dosage: DAILY
     Route: 048
     Dates: start: 20050101
  6. CIPRAMIL [Concomitant]
     Indication: DEPRESSION
     Dosage: ONE AND HALF TABLETS DAILY
     Route: 048

REACTIONS (5)
  - DRUG INEFFECTIVE [None]
  - FALL [None]
  - MUSCULOSKELETAL CHEST PAIN [None]
  - RIB FRACTURE [None]
  - SEDATION [None]
